FAERS Safety Report 10901766 (Version 4)
Quarter: 2016Q1

REPORT INFORMATION
  Report Type: Report from Study
  Country: DE (occurrence: DE)
  Receive Date: 20150310
  Receipt Date: 20160308
  Transmission Date: 20160525
  Serious: Yes (Hospitalization)
  Sender: FDA-Public Use
  Company Number: DE-SA-2015SA012963

PATIENT
  Age: 50 Year
  Sex: Female
  Weight: 85 kg

DRUGS (3)
  1. AUBAGIO [Suspect]
     Active Substance: TERIFLUNOMIDE
     Indication: MULTIPLE SCLEROSIS
     Route: 048
     Dates: start: 20151101, end: 20160211
  2. AUBAGIO [Suspect]
     Active Substance: TERIFLUNOMIDE
     Indication: MULTIPLE SCLEROSIS
     Route: 048
     Dates: start: 20141101, end: 20150210
  3. AUBAGIO [Suspect]
     Active Substance: TERIFLUNOMIDE
     Indication: MULTIPLE SCLEROSIS
     Route: 048

REACTIONS (12)
  - Nausea [Not Recovered/Not Resolved]
  - Diarrhoea [Recovering/Resolving]
  - Colitis [Recovering/Resolving]
  - Cholelithiasis [Unknown]
  - Abdominal pain upper [Recovering/Resolving]
  - Vomiting [Not Recovered/Not Resolved]
  - Tooth infection [Unknown]
  - Circulatory collapse [Recovering/Resolving]
  - Cholelithiasis [Recovering/Resolving]
  - Gastritis [Recovering/Resolving]
  - Flatulence [Not Recovered/Not Resolved]
  - Anal incontinence [Recovering/Resolving]

NARRATIVE: CASE EVENT DATE: 201411
